FAERS Safety Report 7118814-6 (Version None)
Quarter: 2010Q4

REPORT INFORMATION
  Report Type: 
  Country: None (occurrence: None)
  Receive Date: 20101123
  Receipt Date: 20100907
  Transmission Date: 20110411
  Serious: No
  Sender: FDA-Public Use
  Company Number: US-KINGPHARMUSA00001-K201001129

PATIENT
  Age: 30 Year
  Sex: Male
  Weight: 170.7 kg

DRUGS (2)
  1. FLECTOR [Suspect]
     Indication: ARTHRALGIA
     Dosage: 1 PATCH, PRN
     Route: 061
     Dates: start: 20100701
  2. IBUPROFEN [Concomitant]
     Indication: ARTHRALGIA
     Dosage: 600-800 MG PRN
     Route: 048

REACTIONS (1)
  - DRUG SCREEN POSITIVE [None]
